FAERS Safety Report 4359894-0 (Version None)
Quarter: 2004Q2

REPORT INFORMATION
  Report Type: 
  Country: None (occurrence: None)
  Receive Date: 20040518
  Receipt Date: 20040518
  Transmission Date: 20050107
  Serious: Yes (Hospitalization)
  Sender: FDA-Public Use
  Company Number: None

PATIENT
  Age: 93 Year
  Sex: Female
  Weight: 45 kg

DRUGS (12)
  1. PROMETHAZINE [Suspect]
     Indication: NAUSEA
     Dosage: 25 MG ONE TIME INTRAVENOUS
     Route: 042
     Dates: start: 20040516, end: 20040516
  2. AMIODARONE HCL [Concomitant]
  3. NEXIUM [Concomitant]
  4. POTASSIUM CHLORIDE [Concomitant]
  5. ATENOLOL [Concomitant]
  6. FUROSEMIDE [Concomitant]
  7. TORADOL [Concomitant]
  8. GENTAMICIN [Concomitant]
  9. CEFAZOLIN [Concomitant]
  10. ZOFRAN [Concomitant]
  11. LIDOCAINE [Concomitant]
  12. DURAMORPH PF [Concomitant]

REACTIONS (8)
  - BLOOD PRESSURE DIASTOLIC DECREASED [None]
  - COMA [None]
  - FEELING COLD [None]
  - HYPOVENTILATION [None]
  - LETHARGY [None]
  - OXYGEN SATURATION DECREASED [None]
  - PALLOR [None]
  - PHYSICAL EXAMINATION ABNORMAL [None]
